FAERS Safety Report 9646355 (Version 2)
Quarter: 2013Q4

REPORT INFORMATION
  Report Type: Report from Study
  Country: None (occurrence: JP)
  Receive Date: 20131025
  Receipt Date: 20131118
  Transmission Date: 20140711
  Serious: Yes (Death, Other)
  Sender: FDA-Public Use
  Company Number: JP-ALLERGAN-1316817US

PATIENT
  Age: 72 Year
  Sex: Male

DRUGS (3)
  1. BRIMONIDINE 1MG/ML SOL (9541X) [Suspect]
     Indication: GLAUCOMA
     Dosage: 2 GTT, BID
     Route: 047
     Dates: start: 20130308, end: 20130823
  2. RYSMON TG [Concomitant]
     Indication: PRODUCT USED FOR UNKNOWN INDICATION
     Dosage: (STARTED BEFORE AIPHAGAN INITIATION)
  3. TRAVATAN Z [Concomitant]
     Indication: PRODUCT USED FOR UNKNOWN INDICATION
     Dosage: (STARTED BEFORE AIPHAGAN INITIATION)

REACTIONS (1)
  - Neoplasm malignant [Fatal]
